FAERS Safety Report 23936094 (Version 1)
Quarter: 2024Q2

REPORT INFORMATION
  Report Type: Spontaneous
  Country: CN (occurrence: CN)
  Receive Date: 20240604
  Receipt Date: 20240604
  Transmission Date: 20240716
  Serious: Yes (Other)
  Sender: FDA-Public Use
  Company Number: CN-SUN PHARMACEUTICAL INDUSTRIES LTD-2024R1-449179

PATIENT
  Age: 5 Decade
  Sex: Male

DRUGS (5)
  1. BORTEZOMIB [Suspect]
     Active Substance: BORTEZOMIB
     Indication: Cardiac dysfunction
     Dosage: UNK
     Route: 065
     Dates: start: 202002
  2. DEXAMETHASONE [Suspect]
     Active Substance: DEXAMETHASONE
     Indication: Cardiac dysfunction
     Dosage: UNK
     Route: 065
     Dates: start: 202002
  3. DOXORUBICIN [Suspect]
     Active Substance: DOXORUBICIN
     Indication: Cardiac dysfunction
     Dosage: UNK
     Route: 065
     Dates: start: 202002
  4. HYDROCHLOROTHIAZIDE [Suspect]
     Active Substance: HYDROCHLOROTHIAZIDE
     Indication: Cardiac failure
     Dosage: UNK
     Route: 065
     Dates: start: 202002
  5. SPIRONOLACTONE [Suspect]
     Active Substance: SPIRONOLACTONE
     Indication: Cardiac failure
     Dosage: UNK
     Route: 065
     Dates: start: 202002

REACTIONS (1)
  - Disease progression [Unknown]
